FAERS Safety Report 9379870 (Version 1)
Quarter: 2013Q3

REPORT INFORMATION
  Report Type: Spontaneous
  Country: US (occurrence: US)
  Receive Date: 20130702
  Receipt Date: 20130702
  Transmission Date: 20140515
  Serious: Yes (Other)
  Sender: FDA-Public Use
  Company Number: US-ELI_LILLY_AND_COMPANY-US201306007907

PATIENT
  Sex: Male

DRUGS (3)
  1. HUMALOG LISPRO [Suspect]
     Indication: DIABETES MELLITUS
     Dosage: 8 U, BID
  2. HUMALOG LISPRO [Suspect]
     Dosage: 20 U, EACH EVENING
  3. LANTUS [Concomitant]

REACTIONS (1)
  - Blindness unilateral [Not Recovered/Not Resolved]
